FAERS Safety Report 15349642 (Version 2)
Quarter: 2020Q1

REPORT INFORMATION
  Report Type: Spontaneous
  Country: US (occurrence: US)
  Receive Date: 20180904
  Receipt Date: 20200214
  Transmission Date: 20200409
  Serious: Yes (Hospitalization, Other)
  Sender: FDA-Public Use
  Company Number: US-BIOMARINAP-US-2018-119624

PATIENT
  Age: 11 Year
  Sex: Male

DRUGS (2)
  1. ALDURAZYME [Suspect]
     Active Substance: LARONIDASE
     Indication: MUCOPOLYSACCHARIDOSIS I
     Dosage: UNK
     Route: 041
     Dates: start: 20110602
  2. ALDURAZYME [Suspect]
     Active Substance: LARONIDASE
     Dosage: 14.5 MILLIGRAM, QW
     Route: 042

REACTIONS (5)
  - Feeding tube user [Unknown]
  - Device related infection [Recovered/Resolved]
  - Pneumonia [Unknown]
  - Tracheostomy [Unknown]
  - CSF shunt operation [Unknown]
